FAERS Safety Report 9396417 (Version 1)
Quarter: 2013Q3

REPORT INFORMATION
  Report Type: Spontaneous
  Country: US (occurrence: None)
  Receive Date: 20130708
  Receipt Date: 20130708
  Transmission Date: 20140515
  Serious: Yes (Hospitalization)
  Sender: FDA-Public Use
  Company Number: AUR-APL-2013-05588

PATIENT
  Age: 47 Year
  Sex: Female

DRUGS (4)
  1. CITALOPRAM [Suspect]
     Indication: SCHIZOPHRENIA
     Dosage: 1 D
  2. ONDANSETRON [Suspect]
     Indication: ANTIEMETIC SUPPORTIVE CARE
  3. CLOZAPINE [Suspect]
     Indication: SCHIZOPHRENIA
     Dosage: NIGHTLY
  4. METOCLOPRAMIDE [Suspect]
     Indication: ANTIEMETIC SUPPORTIVE CARE

REACTIONS (10)
  - Nausea [None]
  - Vomiting [None]
  - Gastroenteritis viral [None]
  - Unresponsive to stimuli [None]
  - Clonus [None]
  - Heart rate increased [None]
  - Blood pressure decreased [None]
  - Agitation [None]
  - Salivary hypersecretion [None]
  - Agranulocytosis [None]
